FAERS Safety Report 8245026-5 (Version None)
Quarter: 2012Q1

REPORT INFORMATION
  Report Type: 
  Country: None (occurrence: None)
  Receive Date: 20120329
  Receipt Date: 20120327
  Transmission Date: 20120608
  Serious: No
  Sender: FDA-Public Use
  Company Number: US-PFIZER INC-2012078636

PATIENT
  Sex: Female
  Weight: 68.027 kg

DRUGS (4)
  1. TOPROL-XL [Concomitant]
     Indication: HYPERTENSION
     Dosage: UNK
  2. AVALIDE [Concomitant]
     Indication: HYPERTENSION
     Dosage: UNK
  3. AMLODIPINE BESYLATE AND ATORVASTATIN CALCIUM [Suspect]
     Indication: HYPERTENSION
     Dosage: AMLODIPINE BESILATE 5 MG/ATORVASTATIN CALCIUM 10 MG, 1X/DAY
     Route: 048
     Dates: start: 20120128
  4. CADUET [Suspect]
     Indication: HYPERTENSION
     Dosage: AMLODIPINE BESILATE 5 MG/ATORVASTATIN CALCIUM 10 MG, 1X/DAY
     Route: 048
     Dates: end: 20120128

REACTIONS (5)
  - FATIGUE [None]
  - NOCTURIA [None]
  - BALANCE DISORDER [None]
  - TINNITUS [None]
  - DIZZINESS [None]
